FAERS Safety Report 11052802 (Version 4)
Quarter: 2020Q3

REPORT INFORMATION
  Report Type: Spontaneous
  Country: US (occurrence: US)
  Receive Date: 20150421
  Receipt Date: 20200731
  Transmission Date: 20201102
  Serious: No
  Sender: FDA-Public Use
  Company Number: US-JNJFOC-20130803148

PATIENT
  Age: 17 Year
  Sex: Male

DRUGS (3)
  1. RISPERDAL [Suspect]
     Active Substance: RISPERIDONE
     Indication: ABNORMAL BEHAVIOUR
     Route: 048
     Dates: start: 200305, end: 201304
  2. RISPERDAL [Suspect]
     Active Substance: RISPERIDONE
     Indication: INTELLECTUAL DISABILITY
     Route: 048
     Dates: end: 201305
  3. RISPERDAL [Suspect]
     Active Substance: RISPERIDONE
     Indication: EPILEPSY

REACTIONS (3)
  - Abnormal weight gain [Unknown]
  - Emotional distress [Unknown]
  - Gynaecomastia [Unknown]
